FAERS Safety Report 4920718-1 (Version None)
Quarter: 2006Q1

REPORT INFORMATION
  Report Type: 
  Country: None (occurrence: None)
  Receive Date: 20060223
  Receipt Date: 20060216
  Transmission Date: 20060701
  Serious: Yes (Hospitalization, Other)
  Sender: FDA-Public Use
  Company Number: BR-ABBOTT-06P-020-0325558-00

PATIENT
  Age: 8 Year
  Sex: Female
  Weight: 23 kg

DRUGS (2)
  1. DEPAKENE [Suspect]
     Indication: EPILEPSY
     Dosage: 250MG/5ML
     Route: 048
     Dates: start: 20020501, end: 20020820
  2. LAMOTRIGINE [Concomitant]
     Indication: EPILEPSY
     Route: 048
     Dates: start: 20020802, end: 20020820

REACTIONS (8)
  - BLINDNESS UNILATERAL [None]
  - ONYCHOMADESIS [None]
  - PYREXIA [None]
  - SKIN EXFOLIATION [None]
  - STEVENS-JOHNSON SYNDROME [None]
  - THERMAL BURN [None]
  - TOOTH DISORDER [None]
  - VISUAL ACUITY REDUCED [None]
